FAERS Safety Report 7296125-6 (Version None)
Quarter: 2011Q1

REPORT INFORMATION
  Report Type: 
  Country: None (occurrence: None)
  Receive Date: 20110216
  Receipt Date: 20110207
  Transmission Date: 20110831
  Serious: Yes (Death)
  Sender: FDA-Public Use
  Company Number: JP-ROCHE-759077

PATIENT
  Sex: Male

DRUGS (3)
  1. PACLITAXEL [Concomitant]
     Dosage: DOSAGE IS UNCERTAIN
     Route: 041
     Dates: start: 20101115
  2. AVASTIN [Suspect]
     Indication: LUNG ADENOCARCINOMA
     Dosage: ACTION TAKEN: DISCONTINUED
     Route: 041
     Dates: start: 20101115, end: 20110112
  3. CARBOPLATIN [Concomitant]
     Dosage: DOSAGE IS UNCERTAIN
     Route: 041
     Dates: start: 20101115

REACTIONS (2)
  - CARDIO-RESPIRATORY ARREST [None]
  - DEHYDRATION [None]
